FAERS Safety Report 7141883-4 (Version None)
Quarter: 2010Q4

REPORT INFORMATION
  Report Type: 
  Country: None (occurrence: None)
  Receive Date: 20101207
  Receipt Date: 20060215
  Transmission Date: 20110411
  Serious: Yes (Death)
  Sender: FDA-Public Use
  Company Number: NL-ROCHE-746094

PATIENT

DRUGS (3)
  1. XELODA [Suspect]
     Route: 048
  2. IRINOTECAN HCL [Suspect]
     Route: 042
  3. OXALIPLATIN [Suspect]
     Route: 042

REACTIONS (1)
  - DEATH [None]
